FAERS Safety Report 6747980-7 (Version None)
Quarter: 2010Q2

REPORT INFORMATION
  Report Type: 
  Country: None (occurrence: None)
  Receive Date: 20100528
  Receipt Date: 20100521
  Transmission Date: 20101027
  Serious: Yes (Other)
  Sender: FDA-Public Use
  Company Number: MX-MERCK-1005MEX00011

PATIENT
  Age: 27 Month
  Sex: Male
  Weight: 11 kg

DRUGS (2)
  1. SINGULAIR [Suspect]
     Indication: RHINITIS ALLERGIC
     Route: 048
     Dates: start: 20100504
  2. BECLOMETHASONE DIPROPIONATE [Concomitant]
     Indication: RHINITIS ALLERGIC
     Route: 055
     Dates: start: 20100308

REACTIONS (1)
  - THROMBOCYTOPENIC PURPURA [None]
